FAERS Safety Report 8898775 (Version 1)
Quarter: 2012Q4

REPORT INFORMATION
  Report Type: 
  Country: US (occurrence: US)
  Receive Date: 20121108
  Receipt Date: 20121108
  Transmission Date: 20130627
  Serious: Yes (Death, Hospitalization, Other)
  Sender: FDA-Public Use
  Company Number: US-AMGEN-USASP2012024706

PATIENT
  Age: 87 Year
  Sex: Male

DRUGS (1)
  1. ENBREL [Suspect]
     Indication: RHEUMATOID ARTHRITIS
     Dosage: 50 mg, qwk
     Dates: start: 20120130, end: 201203

REACTIONS (4)
  - Pneumonia [Fatal]
  - Clostridium difficile colitis [Not Recovered/Not Resolved]
  - Interstitial lung disease [Unknown]
  - Malaise [Recovered/Resolved]
